FAERS Safety Report 5060856-9 (Version None)
Quarter: 2006Q3

REPORT INFORMATION
  Report Type: 
  Country: None (occurrence: None)
  Receive Date: 20060725
  Receipt Date: 20060526
  Transmission Date: 20061208
  Serious: Yes (Death, Hospitalization, Disabling)
  Sender: FDA-Public Use
  Company Number: DE-GLAXOSMITHKLINE-D0049860A

PATIENT
  Age: 79 Year
  Sex: Female

DRUGS (7)
  1. ARIXTRA [Suspect]
     Dosage: 7.5MG PER DAY
     Route: 058
     Dates: end: 20060525
  2. DURAGESIC-100 [Concomitant]
     Indication: PAIN
     Dosage: 25UGH PER DAY
     Route: 062
  3. LITALIR [Concomitant]
     Indication: MYELOPROLIFERATIVE DISORDER
     Dosage: 500MG UNKNOWN
     Route: 048
  4. CARMEN [Concomitant]
     Dosage: 10MG UNKNOWN
     Route: 048
  5. TORSEMIDE [Concomitant]
     Dosage: 20MG UNKNOWN
     Route: 048
  6. CONCOR [Concomitant]
     Dosage: 5MG PER DAY
     Route: 048
  7. LISINOPRIL [Concomitant]
     Dosage: 20MG UNKNOWN
     Route: 048

REACTIONS (10)
  - ACUTE LEUKAEMIA [None]
  - BLAST CELL PROLIFERATION [None]
  - BLEEDING TIME ABNORMAL [None]
  - CARDIOVASCULAR DISORDER [None]
  - COAGULOPATHY [None]
  - HAEMATOMA [None]
  - INJECTION SITE HAEMORRHAGE [None]
  - MULTI-ORGAN FAILURE [None]
  - PROTHROMBIN TIME PROLONGED [None]
  - THROMBIN TIME PROLONGED [None]
